FAERS Safety Report 24392868 (Version 2)
Quarter: 2024Q4

REPORT INFORMATION
  Report Type: Spontaneous
  Country: US (occurrence: US)
  Receive Date: 20241003
  Receipt Date: 20241011
  Transmission Date: 20250114
  Serious: Yes (Hospitalization, Other)
  Sender: ABBVIE
  Company Number: US-ABBVIE-5948099

PATIENT
  Age: 24 Year
  Sex: Male

DRUGS (4)
  1. DIVALPROEX SODIUM [Suspect]
     Active Substance: DIVALPROEX SODIUM
     Indication: Generalised tonic-clonic seizure
     Route: 048
  2. DESMOPRESSIN [Concomitant]
     Active Substance: DESMOPRESSIN
     Indication: Product used for unknown indication
     Route: 065
  3. DEXTROSE [Concomitant]
     Active Substance: DEXTROSE MONOHYDRATE
     Indication: Product used for unknown indication
     Dosage: 5%
     Route: 065
  4. LEVETIRACETAM [Concomitant]
     Active Substance: LEVETIRACETAM
     Indication: Product used for unknown indication
     Route: 065

REACTIONS (2)
  - Rhabdomyolysis [Recovering/Resolving]
  - Hypertransaminasaemia [Recovered/Resolved]
